FAERS Safety Report 5369285-1 (Version None)
Quarter: 2007Q2

REPORT INFORMATION
  Report Type: 
  Country: None (occurrence: None)
  Receive Date: 20070625
  Receipt Date: 20070223
  Transmission Date: 20071010
  Serious: No
  Sender: FDA-Public Use
  Company Number: US-ASTRAZENECA-2007UW03559

PATIENT
  Age: 41 Year
  Sex: Female
  Weight: 47.2 kg

DRUGS (5)
  1. CRESTOR [Suspect]
     Indication: BLOOD CHOLESTEROL INCREASED
     Route: 048
     Dates: end: 20070221
  2. POTASSIUM CHLORIDE [Concomitant]
  3. NEURONTIN [Concomitant]
  4. LASIX [Concomitant]
  5. NORVASC [Concomitant]

REACTIONS (4)
  - ANOREXIA [None]
  - MUSCULAR WEAKNESS [None]
  - MYALGIA [None]
  - WEIGHT DECREASED [None]
